FAERS Safety Report 6657059-0 (Version None)
Quarter: 2010Q1

REPORT INFORMATION
  Report Type: 
  Country: None (occurrence: None)
  Receive Date: 20100330
  Receipt Date: 20091218
  Transmission Date: 20100710
  Serious: Yes (Hospitalization)
  Sender: FDA-Public Use
  Company Number: JP-JNJFOC-20090505704

PATIENT
  Sex: Female

DRUGS (3)
  1. CRAVIT [Suspect]
     Indication: GASTROENTERITIS
     Route: 048
  2. DOMPERIN [Concomitant]
     Indication: GASTROENTERITIS
     Route: 048
  3. SELBEX [Concomitant]
     Indication: GASTROENTERITIS
     Route: 048

REACTIONS (2)
  - BLOOD PRESSURE DECREASED [None]
  - URTICARIA [None]
